FAERS Safety Report 24844620 (Version 1)
Quarter: 2025Q1

REPORT INFORMATION
  Report Type: Spontaneous
  Country: US (occurrence: US)
  Receive Date: 20250115
  Receipt Date: 20250115
  Transmission Date: 20250409
  Serious: No
  Sender: SANOFI AVENTIS
  Company Number: US-SA-2025SA011390

PATIENT
  Age: 66 Year
  Sex: Female

DRUGS (10)
  1. DUPIXENT [Suspect]
     Active Substance: DUPILUMAB
     Indication: Nasal polyps
     Dosage: 300 MG/QW
     Route: 058
  2. PREGABALIN [Concomitant]
     Active Substance: PREGABALIN
  3. BENZONATATE [Concomitant]
     Active Substance: BENZONATATE
  4. GLUCOTROL XL [Concomitant]
     Active Substance: GLIPIZIDE
  5. LASIX [Concomitant]
     Active Substance: FUROSEMIDE
  6. LIPITOR [Concomitant]
     Active Substance: ATORVASTATIN CALCIUM
  7. LOTREL [Concomitant]
     Active Substance: AMLODIPINE BESYLATE\BENAZEPRIL HYDROCHLORIDE
  8. METFORMIN HYDROCHLORIDE [Concomitant]
     Active Substance: METFORMIN HYDROCHLORIDE
  9. ZINC [Concomitant]
     Active Substance: ZINC
  10. TERBINAFINE [Concomitant]
     Active Substance: TERBINAFINE

REACTIONS (2)
  - Cough [Unknown]
  - Dyspnoea [Unknown]

NARRATIVE: CASE EVENT DATE: 20241201
